FAERS Safety Report 5950417-9 (Version None)
Quarter: 2008Q4

REPORT INFORMATION
  Report Type: 
  Country: None (occurrence: None)
  Receive Date: 20081112
  Receipt Date: 20081110
  Transmission Date: 20090506
  Serious: Yes (Other)
  Sender: FDA-Public Use
  Company Number: US-MERCK-0809USA02614

PATIENT
  Age: 61 Year
  Sex: Female
  Weight: 77 kg

DRUGS (4)
  1. SINGULAIR [Suspect]
     Indication: ASTHMA
     Route: 048
     Dates: start: 20070101, end: 20080601
  2. SINGULAIR [Suspect]
     Indication: RHINITIS ALLERGIC
     Route: 048
     Dates: start: 20070101, end: 20080601
  3. FLONASE [Concomitant]
     Route: 065
  4. CLARITIN [Concomitant]
     Route: 065

REACTIONS (2)
  - DEPRESSION [None]
  - SUICIDAL IDEATION [None]
